FAERS Safety Report 14046518 (Version 2)
Quarter: 2018Q2

REPORT INFORMATION
  Report Type: Spontaneous
  Country: ES (occurrence: ES)
  Receive Date: 20171005
  Receipt Date: 20180423
  Transmission Date: 20180711
  Serious: Yes (Life-Threatening, Other)
  Sender: FDA-Public Use
  Company Number: ES-ACCORD-059528

PATIENT
  Age: 66 Year
  Sex: Female

DRUGS (10)
  1. TOPOTECAN [Concomitant]
     Active Substance: TOPOTECAN HYDROCHLORIDE
     Indication: OVARIAN CANCER
  2. PREDNISOLONE. [Concomitant]
     Active Substance: PREDNISOLONE
     Indication: PREMEDICATION
  3. ASPIRIN. [Concomitant]
     Active Substance: ASPIRIN
     Indication: PREMEDICATION
  4. CARBOPLATIN. [Suspect]
     Active Substance: CARBOPLATIN
     Indication: OVARIAN CANCER
     Dosage: INCREMENTAL DOSES STARTING AT 0.01 MG UP TO FINAL CUMULATIVE DOSE OF 149 MG
     Dates: start: 2011, end: 2014
  5. CISPLATIN. [Suspect]
     Active Substance: CISPLATIN
     Indication: OVARIAN CANCER
  6. RANITIDINE. [Concomitant]
     Active Substance: RANITIDINE
     Indication: PREMEDICATION
  7. GEMCITABINE [Concomitant]
     Active Substance: GEMCITABINE\GEMCITABINE HYDROCHLORIDE
     Indication: OVARIAN CANCER
  8. PACLITAXEL/PACLITAXEL LIPOSOME [Concomitant]
     Indication: OVARIAN CANCER
  9. MONTELUKAST [Concomitant]
     Active Substance: MONTELUKAST SODIUM
     Indication: PREMEDICATION
  10. CETIRIZINE [Concomitant]
     Active Substance: CETIRIZINE HYDROCHLORIDE
     Indication: PREMEDICATION

REACTIONS (5)
  - Haemolytic anaemia [Recovered/Resolved]
  - Neurotoxicity [Unknown]
  - Anaphylactic reaction [Unknown]
  - Hypersensitivity [Unknown]
  - Thrombocytopenia [Recovered/Resolved]
